FAERS Safety Report 19425392 (Version 2)
Quarter: 2021Q2

REPORT INFORMATION
  Report Type: Spontaneous
  Country: US (occurrence: US)
  Receive Date: 20210617
  Receipt Date: 20210621
  Transmission Date: 20210717
  Serious: No
  Sender: FDA-Public Use
  Company Number: US-ORGANON-O2106USA000990

PATIENT
  Age: 30 Year
  Sex: Female
  Weight: 136.96 kg

DRUGS (2)
  1. NEXPLANON [Suspect]
     Active Substance: ETONOGESTREL
     Dosage: 1 IMPLANT, 68MG EVERY 3 YEARS
  2. NEXPLANON [Suspect]
     Active Substance: ETONOGESTREL
     Dosage: 1 IMPLANT, 68MG EVERY 3 YEARS
     Dates: start: 20210503, end: 20210503

REACTIONS (4)
  - Wrong technique in device usage process [Unknown]
  - Product quality issue [Unknown]
  - No adverse event [Unknown]
  - Complication of device insertion [Not Recovered/Not Resolved]

NARRATIVE: CASE EVENT DATE: 20210503
